FAERS Safety Report 9325815 (Version 2)
Quarter: 2013Q3

REPORT INFORMATION
  Report Type: Spontaneous
  Country: US (occurrence: US)
  Receive Date: 20130604
  Receipt Date: 20130705
  Transmission Date: 20140515
  Serious: Yes (Other)
  Sender: FDA-Public Use
  Company Number: US-BAYER-2013-068123

PATIENT
  Age: 26 Year
  Sex: Female
  Weight: 151.47 kg

DRUGS (1)
  1. MIRENA [Suspect]
     Indication: CONTRACEPTION
     Dosage: 20 MCG/24HR, CONT
     Route: 015
     Dates: start: 201206, end: 201301

REACTIONS (4)
  - Embedded device [None]
  - Genital haemorrhage [Recovered/Resolved]
  - Pelvic pain [Recovered/Resolved]
  - Amenorrhoea [None]
